FAERS Safety Report 6965859-2 (Version None)
Quarter: 2010Q3

REPORT INFORMATION
  Report Type: 
  Country: None (occurrence: None)
  Receive Date: 20100903
  Receipt Date: 20100826
  Transmission Date: 20110219
  Serious: No
  Sender: FDA-Public Use
  Company Number: US-US-EMD SERONO, INC.-7015886

PATIENT
  Sex: Male

DRUGS (2)
  1. REBIF [Suspect]
     Indication: MULTIPLE SCLEROSIS
     Route: 058
     Dates: start: 20100607
  2. UNSPECIFIED PREMEDICATION [Concomitant]
     Indication: PREMEDICATION

REACTIONS (2)
  - FEELING HOT [None]
  - PERIPHERAL ARTERIAL OCCLUSIVE DISEASE [None]
